FAERS Safety Report 26135806 (Version 2)
Quarter: 2025Q4

REPORT INFORMATION
  Report Type: Report from Study
  Country: US (occurrence: US)
  Receive Date: 20251209
  Receipt Date: 20251226
  Transmission Date: 20260118
  Serious: Yes (Hospitalization)
  Sender: NOVARTIS
  Company Number: US-002147023-NVSC2025US090061

PATIENT
  Sex: Female

DRUGS (2)
  1. KESIMPTA [Suspect]
     Active Substance: OFATUMUMAB
     Indication: Product used for unknown indication
     Dosage: UNK, QMO
     Route: 058
  2. KESIMPTA [Suspect]
     Active Substance: OFATUMUMAB
     Dosage: 20 MG, QMO
     Route: 058
     Dates: start: 20250610

REACTIONS (13)
  - Condition aggravated [Recovering/Resolving]
  - Infection [Recovering/Resolving]
  - Skin lesion [Recovering/Resolving]
  - Pyrexia [Recovered/Resolved]
  - Asthenia [Unknown]
  - Fatigue [Unknown]
  - Stress [Unknown]
  - Hypoaesthesia [Unknown]
  - Concomitant disease aggravated [Unknown]
  - Dysphagia [Recovering/Resolving]
  - Gastrooesophageal reflux disease [Unknown]
  - Tremor [Recovering/Resolving]
  - Feeling abnormal [Not Recovered/Not Resolved]
